FAERS Safety Report 9636056 (Version 1)
Quarter: 2013Q4

REPORT INFORMATION
  Report Type: Spontaneous
  Country: US (occurrence: None)
  Receive Date: 20131017
  Receipt Date: 20131017
  Transmission Date: 20140711
  Serious: Yes (Hospitalization)
  Sender: FDA-Public Use
  Company Number: 2013AP008899

PATIENT
  Age: 62 Year
  Sex: Male

DRUGS (2)
  1. CIPROFLOXACIN [Suspect]
     Indication: URINARY TRACT INFECTION
  2. PHENAZOPYRIDINE [Concomitant]

REACTIONS (1)
  - Guillain-Barre syndrome [None]
